FAERS Safety Report 23315704 (Version 2)
Quarter: 2024Q1

REPORT INFORMATION
  Report Type: Report from Study
  Country: GB (occurrence: GB)
  Receive Date: 20231219
  Receipt Date: 20240220
  Transmission Date: 20240410
  Serious: Yes (Other)
  Sender: FDA-Public Use
  Company Number: GB-002147023-NVSC2023GB265911

PATIENT
  Sex: Female

DRUGS (1)
  1. COSENTYX [Suspect]
     Active Substance: SECUKINUMAB
     Indication: Psoriatic arthropathy
     Dosage: 300 UNK, QMO
     Route: 058

REACTIONS (5)
  - Multiple fractures [Unknown]
  - Malaise [Unknown]
  - Herpes zoster [Unknown]
  - COVID-19 [Unknown]
  - Cellulitis [Unknown]
